FAERS Safety Report 9859026 (Version 3)
Quarter: 2014Q1

REPORT INFORMATION
  Report Type: Spontaneous
  Country: JP (occurrence: JP)
  Receive Date: 20140131
  Receipt Date: 20140203
  Transmission Date: 20141002
  Serious: Yes (Hospitalization)
  Sender: FDA-Public Use
  Company Number: JP-PFIZER INC-2013076103

PATIENT
  Age: 78 Year
  Sex: Male

DRUGS (1)
  1. AMIODARONE HCL [Suspect]
     Indication: VENTRICULAR TACHYCARDIA
     Dosage: UNK
     Route: 048

REACTIONS (5)
  - Interstitial lung disease [Recovering/Resolving]
  - Respiratory failure [Recovering/Resolving]
  - Systemic inflammatory response syndrome [Recovering/Resolving]
  - Acute respiratory distress syndrome [Recovering/Resolving]
  - Septic shock [Recovering/Resolving]
